FAERS Safety Report 10548361 (Version 4)
Quarter: 2015Q2

REPORT INFORMATION
  Report Type: Report from Study
  Country: JP (occurrence: JP)
  Receive Date: 20141028
  Receipt Date: 20150413
  Transmission Date: 20150821
  Serious: Yes (Hospitalization)
  Sender: FDA-Public Use
  Company Number: JP-PFIZER INC-2014292506

PATIENT
  Age: 60 Year
  Sex: Female
  Weight: 37 kg

DRUGS (1)
  1. XALKORI [Suspect]
     Active Substance: CRIZOTINIB
     Indication: NON-SMALL CELL LUNG CANCER
     Dosage: 250 MG, 2X/DAY
     Route: 048
     Dates: start: 20120810, end: 20130212

REACTIONS (1)
  - Renal abscess [Recovering/Resolving]

NARRATIVE: CASE EVENT DATE: 20121211
